FAERS Safety Report 5330218-5 (Version None)
Quarter: 2007Q2

REPORT INFORMATION
  Report Type: 
  Country: None (occurrence: None)
  Receive Date: 20070521
  Receipt Date: 20070508
  Transmission Date: 20071010
  Serious: Yes (Hospitalization, Other)
  Sender: FDA-Public Use
  Company Number: US-ELI_LILLY_AND_COMPANY-US200704003784

PATIENT
  Age: 14 Year
  Sex: Female
  Weight: 72.562 kg

DRUGS (1)
  1. PROZAC [Suspect]
     Indication: ANXIETY
     Dosage: 20 MG, 2/D
     Route: 048
     Dates: start: 20050101

REACTIONS (11)
  - ANXIETY [None]
  - CONVERSION DISORDER [None]
  - DIZZINESS [None]
  - DYSARTHRIA [None]
  - DYSSTASIA [None]
  - HEADACHE [None]
  - HYPOXIA [None]
  - LOSS OF CONSCIOUSNESS [None]
  - SYNCOPE [None]
  - SYNCOPE VASOVAGAL [None]
  - VERTIGO [None]
